FAERS Safety Report 9579469 (Version 2)
Quarter: 2013Q4

REPORT INFORMATION
  Report Type: Spontaneous
  Country: US (occurrence: US)
  Receive Date: 20131001
  Receipt Date: 20131001
  Transmission Date: 20140711
  Serious: No
  Sender: FDA-Public Use
  Company Number: US-AMGEN-USASP2013012816

PATIENT
  Age: 65 Year
  Sex: Female
  Weight: 59.41 kg

DRUGS (7)
  1. ENBREL [Suspect]
     Indication: RHEUMATOID ARTHRITIS
     Dosage: 50 MG, QWK
     Route: 058
  2. OMEPRAZOLE                         /00661202/ [Concomitant]
     Dosage: 10 MG, UNK
  3. LABETALOL                          /00422302/ [Concomitant]
     Dosage: 100 MG, UNK
  4. SIMVASTATIN [Concomitant]
     Dosage: 5 MG, UNK
  5. RAMIPRIL [Concomitant]
     Dosage: 1.25 MG, UNK
  6. CALCIUM +D                         /00944201/ [Concomitant]
     Dosage: 600 MG, UNK
  7. ASPIRIN [Concomitant]
     Dosage: 81 MG, UNK

REACTIONS (2)
  - Pain in extremity [Unknown]
  - Nodule [Unknown]
